FAERS Safety Report 8255226-6 (Version None)
Quarter: 2012Q1

REPORT INFORMATION
  Report Type: 
  Country: None (occurrence: None)
  Receive Date: 20120322
  Receipt Date: 20111221
  Transmission Date: 20120608
  Serious: Yes (Hospitalization)
  Sender: FDA-Public Use
  Company Number: UTC-013822

PATIENT
  Age: 55 Year
  Sex: Male
  Weight: 54.5 kg

DRUGS (1)
  1. TYVASO [Suspect]
     Indication: PULMONARY ARTERIAL HYPERTENSION
     Dosage: 216 MCG (54 MCG, 4 IN 1 D), INHALATION
     Route: 055
     Dates: start: 20111102

REACTIONS (5)
  - GASTROINTESTINAL DISORDER [None]
  - DYSPEPSIA [None]
  - ABDOMINAL PAIN UPPER [None]
  - CARDIOVASCULAR DISORDER [None]
  - HYPOAESTHESIA [None]
